FAERS Safety Report 24070324 (Version 1)
Quarter: 2024Q3

REPORT INFORMATION
  Report Type: Report from Study
  Country: PH (occurrence: PH)
  Receive Date: 20240710
  Receipt Date: 20240710
  Transmission Date: 20241017
  Serious: No
  Sender: ROCHE
  Company Number: PH-ROCHE-3570991

PATIENT
  Age: 70 Year
  Sex: Female
  Weight: 66.5 kg

DRUGS (1)
  1. PHESGO [Suspect]
     Active Substance: HYALURONIDASE-ZZXF\PERTUZUMAB\TRASTUZUMAB
     Indication: HER2 positive breast cancer
     Dosage: 600MG X 1 VIAL ;ONGOING: NO
     Route: 058

REACTIONS (2)
  - Palpitations [Unknown]
  - Fatigue [Unknown]
